FAERS Safety Report 22626678 (Version 1)
Quarter: 2023Q2

REPORT INFORMATION
  Report Type: Spontaneous
  Country: ZA (occurrence: ZA)
  Receive Date: 20230621
  Receipt Date: 20230621
  Transmission Date: 20230721
  Serious: Yes (Death, Hospitalization)
  Sender: FDA-Public Use
  Company Number: ZA-BAYER-2023A049774

PATIENT
  Age: 90 Year
  Sex: Male

DRUGS (5)
  1. XARELTO [Suspect]
     Active Substance: RIVAROXABAN
     Indication: Product used for unknown indication
     Dosage: 15 MG
     Route: 048
     Dates: start: 20220411
  2. XARELTO [Suspect]
     Active Substance: RIVAROXABAN
     Dosage: 10 MG
     Route: 048
     Dates: start: 20230119
  3. BISOPROLOL FUMARATE [Suspect]
     Active Substance: BISOPROLOL FUMARATE
     Dosage: 2.5 MG
  4. WARFARIN [Concomitant]
     Active Substance: WARFARIN
  5. MORPHINE [Concomitant]
     Active Substance: MORPHINE

REACTIONS (16)
  - Subdural haematoma [Fatal]
  - Urinary retention [Unknown]
  - Gait inability [Unknown]
  - Confusional state [Unknown]
  - Amnesia [Unknown]
  - Diarrhoea [Unknown]
  - Fatigue [Unknown]
  - Headache [Unknown]
  - Vomiting [Unknown]
  - Gastrointestinal infection [Unknown]
  - Ear pain [Unknown]
  - Eye pain [Unknown]
  - General physical health deterioration [Unknown]
  - Contusion [Unknown]
  - Pain [Unknown]
  - Dyspnoea [Unknown]

NARRATIVE: CASE EVENT DATE: 20230401
